FAERS Safety Report 22609601 (Version 1)
Quarter: 2023Q2

REPORT INFORMATION
  Report Type: Spontaneous
  Country: DE (occurrence: DE)
  Receive Date: 20230616
  Receipt Date: 20230616
  Transmission Date: 20230721
  Serious: Yes (Hospitalization)
  Sender: FDA-Public Use
  Company Number: DE-MLMSERVICE-20230601-4318909-1

PATIENT
  Age: 14 Year
  Sex: Female

DRUGS (1)
  1. IBUPROFEN [Suspect]
     Active Substance: IBUPROFEN
     Indication: Respiratory tract infection
     Route: 065

REACTIONS (3)
  - Dermatitis bullous [Recovered/Resolved]
  - Enanthema [Recovered/Resolved]
  - Product use in unapproved indication [Recovered/Resolved]
